FAERS Safety Report 7943423-6 (Version None)
Quarter: 2011Q4

REPORT INFORMATION
  Report Type: 
  Country: None (occurrence: None)
  Receive Date: 20111128
  Receipt Date: 20111121
  Transmission Date: 20120403
  Serious: Yes (Hospitalization)
  Sender: FDA-Public Use
  Company Number: US-TEVA-310126USA

PATIENT
  Sex: Male

DRUGS (1)
  1. DONEPEZIL HCL [Suspect]

REACTIONS (3)
  - BRADYCARDIA [None]
  - ACCIDENTAL DRUG INTAKE BY CHILD [None]
  - MENTAL STATUS CHANGES [None]
